FAERS Safety Report 24749789 (Version 1)
Quarter: 2024Q4

REPORT INFORMATION
  Report Type: Spontaneous
  Country: BG (occurrence: BG)
  Receive Date: 20241218
  Receipt Date: 20241218
  Transmission Date: 20250114
  Serious: Yes (Other)
  Sender: PFIZER
  Company Number: None

PATIENT
  Age: 49 Year
  Sex: Female

DRUGS (1)
  1. DEPO-MEDROL [Suspect]
     Active Substance: METHYLPREDNISOLONE ACETATE
     Indication: Periarthritis
     Dosage: 80 MG, SINGLE (ONE INTRAARTICULAR INJECTION OF 80 MG WAS APPLIED)
     Route: 014
     Dates: start: 20241022, end: 20241022

REACTIONS (6)
  - Rotator cuff syndrome [Not Recovered/Not Resolved]
  - Condition aggravated [Not Recovered/Not Resolved]
  - Inflammation [Not Recovered/Not Resolved]
  - Pseudocyst [Not Recovered/Not Resolved]
  - Bone marrow oedema [Unknown]
  - Off label use [Unknown]

NARRATIVE: CASE EVENT DATE: 20240101
